FAERS Safety Report 6161875-1 (Version None)
Quarter: 2009Q2

REPORT INFORMATION
  Report Type: 
  Country: None (occurrence: None)
  Receive Date: 20090421
  Receipt Date: 20090417
  Transmission Date: 20091009
  Serious: Yes (Death, Hospitalization)
  Sender: FDA-Public Use
  Company Number: B0441263A

PATIENT
  Sex: Male
  Weight: 101 kg

DRUGS (3)
  1. ROSIGLITAZONE [Suspect]
     Dosage: 4MG PER DAY
     Route: 048
     Dates: start: 20030423
  2. SULPHONYLUREA [Suspect]
     Route: 048
     Dates: start: 20031002
  3. METFORMIN HCL [Concomitant]
     Route: 048
     Dates: start: 20020724

REACTIONS (5)
  - BLISTER [None]
  - BURNS SECOND DEGREE [None]
  - CARDIAC FAILURE ACUTE [None]
  - ERYTHEMA [None]
  - THERMAL BURN [None]
